FAERS Safety Report 9405355 (Version 1)
Quarter: 2013Q3

REPORT INFORMATION
  Report Type: Spontaneous
  Country: GB (occurrence: None)
  Receive Date: 20130715
  Receipt Date: 20130715
  Transmission Date: 20140515
  Serious: Yes (Other)
  Sender: FDA-Public Use
  Company Number: GER/UKI/13/0030462

PATIENT
  Sex: Male

DRUGS (3)
  1. SERTRALINE (SERTRALINE HYDROCHLORIDE) [Suspect]
     Indication: PRODUCT USED FOR UNKNOWN INDICATION
  2. TRAMADOL (TRAMADOL HYDROCHLORIDE) [Suspect]
     Indication: PRODUCT USED FOR UNKNOWN INDICATION
     Route: 048
  3. ZISPIN [Suspect]
     Indication: PRODUCT USED FOR UNKNOWN INDICATION
     Route: 048

REACTIONS (5)
  - Grand mal convulsion [None]
  - Head injury [None]
  - Loss of consciousness [None]
  - Tongue injury [None]
  - Prescribed overdose [None]
